FAERS Safety Report 5757304-X (Version None)
Quarter: 2008Q2

REPORT INFORMATION
  Report Type: 
  Country: None (occurrence: None)
  Receive Date: 20080528
  Receipt Date: 20080509
  Transmission Date: 20081010
  Serious: Yes (Hospitalization)
  Sender: FDA-Public Use
  Company Number: 2008AL004765

PATIENT
  Age: 62 Year
  Sex: Female

DRUGS (4)
  1. DIGOXIN [Suspect]
     Dosage: .25MG DAILY PO
     Route: 048
  2. ISOSORB [Concomitant]
  3. CIPROFLOXACIN HCL [Concomitant]
  4. ENALAPRIL MALEATE [Concomitant]

REACTIONS (3)
  - DYSGEUSIA [None]
  - PHARMACEUTICAL PRODUCT COMPLAINT [None]
  - THERAPEUTIC AGENT TOXICITY [None]
